FAERS Safety Report 10157545 (Version 1)
Quarter: 2014Q2

REPORT INFORMATION
  Report Type: Report from Study
  Country: US (occurrence: US)
  Receive Date: 20140507
  Receipt Date: 20140507
  Transmission Date: 20141212
  Serious: Yes (Hospitalization)
  Sender: FDA-Public Use
  Company Number: PHHY2014US053514

PATIENT
  Age: 57 Year
  Sex: Male

DRUGS (11)
  1. LEUCOVORIN CALCIUM [Suspect]
     Dosage: 464 MG (200 MG/M2,1 IN 2 WK)
     Route: 042
     Dates: start: 20140210, end: 20140220
  2. LEUCOVORIN CALCIUM [Suspect]
     Dates: start: 20140321
  3. OXALIPLATIN [Suspect]
     Indication: COLON CANCER
     Dosage: 197 MG (85 MG/M2,1 IN 2 WK)
     Route: 042
     Dates: start: 20140210, end: 20140220
  4. OXALIPLATIN [Suspect]
     Indication: RECTAL CANCER
     Route: 042
     Dates: start: 20140321
  5. 5-FLUOROURACIL [Suspect]
     Indication: COLON CANCER
     Dosage: 7424 MG, 1 IN 2 WK
     Route: 042
     Dates: start: 20140211, end: 20140220
  6. 5-FLUOROURACIL [Suspect]
     Indication: RECTAL CANCER
     Dosage: 3200 MG/M2, UNK
     Route: 042
     Dates: start: 20140321
  7. IRINOTECAN [Suspect]
     Indication: COLON CANCER
     Dosage: 383 MG, 1 IN 2 WK
     Route: 042
     Dates: start: 20140210
  8. BEVACIZUMAB [Suspect]
     Dosage: 430 MG (5 MG/KG,1 IN 2 WK)
     Route: 042
     Dates: start: 20140210, end: 20140220
  9. BEVACIZUMAB [Suspect]
     Route: 042
     Dates: start: 20140321, end: 20140407
  10. BEVACIZUMAB [Suspect]
     Route: 042
     Dates: start: 20140421
  11. LISINOPRIL [Concomitant]

REACTIONS (5)
  - Colitis [Unknown]
  - Large intestinal obstruction [Unknown]
  - Hypertension [Unknown]
  - Small intestinal obstruction [Unknown]
  - Atelectasis [Unknown]
